FAERS Safety Report 5770102-6 (Version None)
Quarter: 2008Q2

REPORT INFORMATION
  Report Type: 
  Country: None (occurrence: None)
  Receive Date: 20080613
  Receipt Date: 20080428
  Transmission Date: 20081010
  Serious: No
  Sender: FDA-Public Use
  Company Number: US-ABBOTT-08P-163-0448096-00

PATIENT
  Sex: Female
  Weight: 68.1 kg

DRUGS (4)
  1. HUMIRA [Suspect]
     Indication: CROHN'S DISEASE
     Route: 058
     Dates: start: 20080416
  2. HUMIRA [Suspect]
     Route: 058
     Dates: start: 20080417
  3. HUMIRA [Suspect]
     Route: 058
  4. HUMIRA [Suspect]
     Dosage: PREFILLED SYRINGE
     Route: 058
     Dates: start: 20080414

REACTIONS (12)
  - ABDOMINAL PAIN UPPER [None]
  - DIARRHOEA [None]
  - EYE SWELLING [None]
  - GASTROENTERITIS ROTAVIRUS [None]
  - HEADACHE [None]
  - INJECTION SITE PAIN [None]
  - JOINT SWELLING [None]
  - NAUSEA [None]
  - OEDEMA PERIPHERAL [None]
  - SKIN TIGHTNESS [None]
  - SWELLING FACE [None]
  - VIRAL INFECTION [None]
